FAERS Safety Report 7639010-X (Version None)
Quarter: 2011Q3

REPORT INFORMATION
  Report Type: 
  Country: None (occurrence: None)
  Receive Date: 20110726
  Receipt Date: 20110726
  Transmission Date: 20111222
  Serious: Yes (Hospitalization)
  Sender: FDA-Public Use
  Company Number: None

PATIENT
  Sex: Male

DRUGS (1)
  1. TAMSULOSIN HCL [Suspect]
     Dosage: TAKE 1 CAPSULE EACH DAY
     Dates: start: 20110501

REACTIONS (4)
  - EPISTAXIS [None]
  - JOINT DISLOCATION [None]
  - FALL [None]
  - SYNCOPE [None]
